FAERS Safety Report 16135557 (Version 1)
Quarter: 2019Q1

REPORT INFORMATION
  Report Type: Spontaneous
  Country: DK (occurrence: DK)
  Receive Date: 20190329
  Receipt Date: 20190329
  Transmission Date: 20190418
  Serious: Yes (Life-Threatening, Hospitalization, Other)
  Sender: FDA-Public Use
  Company Number: DK-TAKEDA-2019TUS018070

PATIENT
  Age: 23 Year
  Sex: Female

DRUGS (3)
  1. ENTYVIO [Suspect]
     Active Substance: VEDOLIZUMAB
     Indication: INFLAMMATORY BOWEL DISEASE
     Route: 042
     Dates: start: 20170424, end: 20170602
  2. URSOCHOL [Concomitant]
     Active Substance: URSODIOL
     Indication: BILIARY CIRRHOSIS
     Dosage: 750 MILLIGRAM, QD
     Route: 048
     Dates: start: 20141120
  3. SOLU-MEDROL [Concomitant]
     Active Substance: METHYLPREDNISOLONE SODIUM SUCCINATE
     Indication: CROHN^S DISEASE
     Dosage: UNK
     Dates: start: 20170424

REACTIONS (9)
  - Thrombotic thrombocytopenic purpura [Recovered/Resolved]
  - Acute kidney injury [Recovered/Resolved]
  - Memory impairment [Recovered/Resolved]
  - Speech disorder [Recovered/Resolved]
  - Catatonia [Recovered/Resolved]
  - Thrombosis [Recovered/Resolved]
  - Loss of consciousness [Recovered/Resolved]
  - Pyelonephritis [Recovered/Resolved]
  - Haemolytic uraemic syndrome [Recovered/Resolved]

NARRATIVE: CASE EVENT DATE: 201706
